FAERS Safety Report 8202538-8 (Version None)
Quarter: 2012Q1

REPORT INFORMATION
  Report Type: 
  Country: None (occurrence: None)
  Receive Date: 20120312
  Receipt Date: 20120301
  Transmission Date: 20120608
  Serious: Yes (Hospitalization)
  Sender: FDA-Public Use
  Company Number: FR-JNJFOC-20120302915

PATIENT
  Sex: Male

DRUGS (3)
  1. IMODIUM [Suspect]
     Indication: DIARRHOEA
     Route: 048
     Dates: start: 20110722, end: 20110814
  2. CHLOROQUINE PHOSPHATE [Suspect]
     Indication: MALARIA PROPHYLAXIS
     Route: 048
     Dates: start: 20110721, end: 20110817
  3. ACETAMINOPHEN [Suspect]
     Indication: PAIN
     Route: 048
     Dates: start: 20110722, end: 20110814

REACTIONS (7)
  - EOSINOPHILIA [None]
  - RASH GENERALISED [None]
  - PRURITUS [None]
  - URTICARIA [None]
  - LYMPHADENOPATHY [None]
  - BLOOD CREATININE INCREASED [None]
  - SKIN EXFOLIATION [None]
